FAERS Safety Report 20612345 (Version 4)
Quarter: 2025Q4

REPORT INFORMATION
  Report Type: Spontaneous
  Country: AU (occurrence: AU)
  Receive Date: 20220318
  Receipt Date: 20251218
  Transmission Date: 20260118
  Serious: Yes (Hospitalization, Other)
  Sender: ROCHE
  Company Number: AU-ROCHE-3053177

PATIENT
  Age: 74 Year
  Sex: Male
  Weight: 73.00 kg

DRUGS (4)
  1. RITUXIMAB [Suspect]
     Active Substance: RITUXIMAB
     Indication: Hairy cell leukaemia
  2. ZELBORAF [Suspect]
     Active Substance: VEMURAFENIB
     Indication: Hairy cell leukaemia
     Dosage: 240MG TWICE DAILY
     Route: 048
     Dates: start: 202209
  3. ZELBORAF [Suspect]
     Active Substance: VEMURAFENIB
     Route: 048
  4. CLADRIBINE [Suspect]
     Active Substance: CLADRIBINE
     Indication: Hairy cell leukaemia

REACTIONS (4)
  - Neutropenia [Unknown]
  - Pneumonia fungal [Unknown]
  - Hairy cell leukaemia recurrent [Unknown]
  - Off label use [Unknown]

NARRATIVE: CASE EVENT DATE: 20240101
